FAERS Safety Report 4561862-0 (Version None)
Quarter: 2005Q1

REPORT INFORMATION
  Report Type: 
  Country: None (occurrence: None)
  Receive Date: 20050125
  Receipt Date: 20050112
  Transmission Date: 20050727
  Serious: Yes (Congenital Anomaly)
  Sender: FDA-Public Use
  Company Number: 200500414

PATIENT
  Sex: Male
  Weight: 3.88 kg

DRUGS (2)
  1. TAZORAC [Suspect]
     Indication: DRUG EXPOSURE DURING PREGNANCY
     Dates: start: 20020220, end: 20020319
  2. CITRACAL [Concomitant]

REACTIONS (8)
  - BREECH PRESENTATION [None]
  - CAESAREAN SECTION [None]
  - DRUG EXPOSURE DURING PREGNANCY [None]
  - NAIL DISCOLOURATION [None]
  - NAIL DISORDER [None]
  - NEONATAL DISORDER [None]
  - ONYCHOMADESIS [None]
  - PREGNANCY [None]
